FAERS Safety Report 17337601 (Version 1)
Quarter: 2020Q1

REPORT INFORMATION
  Report Type: Spontaneous
  Country: US (occurrence: US)
  Receive Date: 20200129
  Receipt Date: 20200129
  Transmission Date: 20200409
  Serious: No
  Sender: FDA-Public Use
  Company Number: US-009507513-2001USA006258

PATIENT
  Age: 1 Month
  Sex: Male
  Weight: 4.4 kg

DRUGS (4)
  1. HEPARIN [Concomitant]
     Active Substance: HEPARIN SODIUM
  2. ASPIRIN. [Concomitant]
     Active Substance: ASPIRIN
  3. FUROSEMIDE. [Concomitant]
     Active Substance: FUROSEMIDE
  4. PROVENTIL [Suspect]
     Active Substance: ALBUTEROL
     Indication: DYSPNOEA
     Dosage: 6 DOSES 2.5 MG OVER 12 HOURS WITH DECREASING INTERVAL (15 MG TOTAL IN 24 H); INTERVAL WAS SHORTENED

REACTIONS (2)
  - Supraventricular tachycardia [Recovered/Resolved]
  - Product use issue [Unknown]
